FAERS Safety Report 5993072-4 (Version None)
Quarter: 2008Q4

REPORT INFORMATION
  Report Type: 
  Country: None (occurrence: None)
  Receive Date: 20081212
  Receipt Date: 20081210
  Transmission Date: 20090506
  Serious: Yes (Other)
  Sender: FDA-Public Use
  Company Number: US-BRISTOL-MYERS SQUIBB COMPANY-14439145

PATIENT
  Sex: Male

DRUGS (3)
  1. WARFARIN SODIUM (INV) [Suspect]
  2. ASPIRIN [Suspect]
  3. PLAVIX [Suspect]

REACTIONS (1)
  - MYOCARDIAL INFARCTION [None]
